FAERS Safety Report 5804537-X (Version None)
Quarter: 2008Q3

REPORT INFORMATION
  Report Type: 
  Country: None (occurrence: None)
  Receive Date: 20080707
  Receipt Date: 20080707
  Transmission Date: 20090109
  Serious: No
  Sender: FDA-Public Use
  Company Number: None

PATIENT
  Age: 33 Year
  Sex: Male
  Weight: 52.1637 kg

DRUGS (2)
  1. EQUATE NICOTINE POLARCILEX GUM 2MG EQUATE/WAL-MART [Suspect]
     Indication: SMOKING CESSATION THERAPY
     Dosage: 10 PIECES A DAY UPON URGE TO SMOKE
     Dates: start: 20080301, end: 20080705
  2. NICOTINE [Concomitant]

REACTIONS (5)
  - DIARRHOEA [None]
  - FLATULENCE [None]
  - MUSCLE SPASMS [None]
  - ORAL DISORDER [None]
  - ORAL PAIN [None]
